FAERS Safety Report 13005295 (Version 1)
Quarter: 2016Q4

REPORT INFORMATION
  Report Type: Spontaneous
  Country: US (occurrence: US)
  Receive Date: 20161207
  Receipt Date: 20161207
  Transmission Date: 20170207
  Serious: No
  Sender: FDA-Public Use
  Company Number: US-TEVA-706411USA

PATIENT
  Age: 55 Year
  Sex: Female
  Weight: 90.7 kg

DRUGS (11)
  1. GUAIFENESIN W/ DEXTROMETHORPHAN [Suspect]
     Active Substance: DEXTROMETHORPHAN\GUAIFENESIN
     Indication: PARANASAL SINUS DISCOMFORT
     Dosage: 2400 MILLIGRAM DAILY;
     Route: 048
     Dates: start: 20161008, end: 20161008
  2. GUAIFENESIN W/ DEXTROMETHORPHAN [Suspect]
     Active Substance: DEXTROMETHORPHAN\GUAIFENESIN
     Indication: UPPER RESPIRATORY TRACT CONGESTION
     Dosage: 1200 MILLIGRAM DAILY;
     Route: 048
     Dates: start: 20161007, end: 20161007
  3. VITAMINS [Concomitant]
     Active Substance: VITAMINS
  4. CALCIUM [Concomitant]
     Active Substance: CALCIUM
  5. ASPIRIN. [Concomitant]
     Active Substance: ASPIRIN
  6. METFORMIN [Concomitant]
     Active Substance: METFORMIN HYDROCHLORIDE
  7. VITAMIN B12 [Concomitant]
     Active Substance: CYANOCOBALAMIN
  8. NAPROXEN. [Concomitant]
     Active Substance: NAPROXEN
  9. TRAMADOL. [Concomitant]
     Active Substance: TRAMADOL
  10. LANTUS [Concomitant]
     Active Substance: INSULIN GLARGINE
  11. HYDROCODONE [Concomitant]
     Active Substance: HYDROCODONE

REACTIONS (5)
  - Tongue discomfort [Unknown]
  - Swollen tongue [Unknown]
  - Tongue discolouration [Unknown]
  - Incorrect dose administered [Unknown]
  - Glossitis [Unknown]

NARRATIVE: CASE EVENT DATE: 20161007
